FAERS Safety Report 12482533 (Version 1)
Quarter: 2016Q2

REPORT INFORMATION
  Report Type: Report from Study
  Country: US (occurrence: US)
  Receive Date: 20160620
  Receipt Date: 20160620
  Transmission Date: 20160815
  Serious: Yes (Hospitalization)
  Sender: FDA-Public Use
  Company Number: US-TEVA-668483USA

PATIENT
  Age: 60 Year
  Sex: Female
  Weight: 58.4 kg

DRUGS (11)
  1. TIZANIDINE HYDROCHLORIDE. [Suspect]
     Active Substance: TIZANIDINE HYDROCHLORIDE
     Indication: MUSCLE SPASMS
     Dosage: 16 MILLIGRAM DAILY;
     Route: 048
     Dates: start: 20030101
  2. COPAXONE [Suspect]
     Active Substance: GLATIRAMER ACETATE
     Indication: MULTIPLE SCLEROSIS
     Dosage: 20 MILLIGRAM DAILY;
     Route: 058
     Dates: start: 19940826
  3. BACLOFEN. [Suspect]
     Active Substance: BACLOFEN
     Indication: MUSCLE SPASMS
     Dosage: 120 MILLIGRAM DAILY;
     Route: 048
     Dates: start: 20020907
  4. DESLORATADINE. [Concomitant]
     Active Substance: DESLORATADINE
     Indication: SEASONAL ALLERGY
     Route: 048
     Dates: start: 20030523
  5. NIACIN. [Concomitant]
     Active Substance: NIACIN
     Indication: HYPERCHOLESTEROLAEMIA
     Dosage: 2000 MILLIGRAM DAILY;
     Route: 048
     Dates: start: 20040802
  6. MECLIZINE [Concomitant]
     Active Substance: MECLIZINE HYDROCHLORIDE
     Indication: DIZZINESS
     Dosage: 25 MILLIGRAM DAILY;
     Route: 048
     Dates: start: 20151126
  7. OXYBUTYNIN [Concomitant]
     Active Substance: OXYBUTYNIN
     Indication: NEUROGENIC BLADDER
     Dosage: 20 MILLIGRAM DAILY;
     Route: 048
     Dates: start: 20050501
  8. VITAMIN D3 [Concomitant]
     Active Substance: CHOLECALCIFEROL
     Indication: VITAMIN SUPPLEMENTATION
     Dosage: 2000 IU (INTERNATIONAL UNIT) DAILY;
     Route: 048
     Dates: start: 20140301
  9. CLORAZEPATE DIPOTASSIUM. [Concomitant]
     Active Substance: CLORAZEPATE DIPOTASSIUM
     Indication: PREMENSTRUAL SYNDROME
     Dosage: 7.5 MILLIGRAM DAILY;
     Route: 048
     Dates: start: 1983
  10. VERAPAMIL [Suspect]
     Active Substance: VERAPAMIL HYDROCHLORIDE
     Indication: HYPERTENSION
     Dosage: 160 MILLIGRAM DAILY;
     Route: 048
     Dates: start: 20151128
  11. METHENAMINE [Concomitant]
     Active Substance: METHENAMINE
     Indication: PROPHYLAXIS URINARY TRACT INFECTION
     Dosage: 2000 MILLIGRAM DAILY;
     Route: 048
     Dates: start: 20081205

REACTIONS (2)
  - Hypotension [Recovered/Resolved]
  - Dysstasia [Recovered/Resolved]

NARRATIVE: CASE EVENT DATE: 20160605
